FAERS Safety Report 7068512-2 (Version None)
Quarter: 2010Q4

REPORT INFORMATION
  Report Type: 
  Country: None (occurrence: None)
  Receive Date: 20101028
  Receipt Date: 20101022
  Transmission Date: 20110411
  Serious: Yes (Hospitalization)
  Sender: FDA-Public Use
  Company Number: US-WYE-H18297610

PATIENT
  Sex: Male
  Weight: 93.3 kg

DRUGS (6)
  1. INOTUZUMAB OZOGAMICIN [Suspect]
     Indication: DIFFUSE LARGE B-CELL LYMPHOMA
     Route: 042
     Dates: start: 20100304, end: 20100720
  2. MELPHALAN HYDROCHLORIDE [Suspect]
     Indication: DIFFUSE LARGE B-CELL LYMPHOMA
     Dosage: CONDITIONING REGIMEN
     Dates: start: 20100907, end: 20100907
  3. CARMUSTINE [Suspect]
     Indication: DIFFUSE LARGE B-CELL LYMPHOMA
     Dosage: CONDITIONING REGIMEN
     Dates: start: 20100902, end: 20100902
  4. CYTARABINE [Suspect]
     Indication: DIFFUSE LARGE B-CELL LYMPHOMA
     Dosage: CONDITIONING REGIMEN
     Dates: start: 20100903, end: 20100906
  5. ETOPOSIDE [Suspect]
     Indication: DIFFUSE LARGE B-CELL LYMPHOMA
     Dosage: CONDITIONING REGIMEN
     Dates: start: 20100903, end: 20100903
  6. RITUXIMAB/INOTUZUMAB OZOGAMICIN [Suspect]
     Indication: DIFFUSE LARGE B-CELL LYMPHOMA
     Dosage: 375 MG/M^2 AT UNKNOWN FREQUENCY

REACTIONS (1)
  - VENOOCCLUSIVE LIVER DISEASE [None]
